FAERS Safety Report 7455894-2 (Version None)
Quarter: 2011Q2

REPORT INFORMATION
  Report Type: 
  Country: None (occurrence: None)
  Receive Date: 20110503
  Receipt Date: 20110425
  Transmission Date: 20111010
  Serious: Yes (Other)
  Sender: FDA-Public Use
  Company Number: B0696224A

PATIENT
  Sex: Male

DRUGS (21)
  1. CHINESE MEDICINE [Concomitant]
     Dosage: 15G PER DAY
     Route: 048
     Dates: start: 20110125
  2. TELEMIN SOFT [Concomitant]
     Dosage: 10MG PER DAY
     Route: 054
     Dates: start: 20110125
  3. TEGRETOL [Concomitant]
     Dosage: 750MG PER DAY
     Route: 048
     Dates: start: 20110125
  4. UNKNOWN [Concomitant]
     Dosage: 6G PER DAY
     Route: 048
     Dates: start: 20110125
  5. LAMICTAL [Suspect]
     Dosage: 200MG PER DAY
     Route: 048
     Dates: end: 20110329
  6. MEILAX [Concomitant]
     Dosage: 4MG PER DAY
     Route: 048
  7. GASCON [Concomitant]
     Dosage: 120MG PER DAY
     Route: 048
     Dates: start: 20110125
  8. DEPAKENE [Concomitant]
     Route: 048
  9. DIAPP [Concomitant]
     Indication: CONVULSION
     Route: 054
  10. GANATON [Concomitant]
     Dosage: 150MG PER DAY
     Route: 048
     Dates: start: 20110125
  11. ALLEGRA [Concomitant]
     Dosage: 120MG PER DAY
     Route: 048
     Dates: start: 20110125
  12. CINAL [Concomitant]
     Dosage: 3G PER DAY
     Route: 048
     Dates: start: 20110125
  13. ALOSENN [Concomitant]
     Dosage: 1G PER DAY
     Route: 048
     Dates: start: 20110125
  14. EXCEGRAN [Concomitant]
     Route: 048
  15. MYSTAN [Concomitant]
     Dosage: 9MG PER DAY
     Route: 048
     Dates: start: 20110125
  16. ALEVIATIN [Concomitant]
     Dosage: 150MG PER DAY
     Route: 048
     Dates: start: 20110125
  17. KEPPRA [Concomitant]
     Dosage: 1000MG PER DAY
     Dates: start: 20110329
  18. RIVOTRIL [Concomitant]
     Dosage: 3MG PER DAY
     Route: 048
     Dates: start: 20110125
  19. EXCEGRAN [Concomitant]
     Route: 048
  20. PANTOSIN [Concomitant]
     Dosage: 300MG PER DAY
     Route: 048
     Dates: start: 20110125
  21. XYLOCAINE [Concomitant]
     Dosage: 60ML PER DAY
     Route: 061
     Dates: start: 20110125

REACTIONS (2)
  - GAZE PALSY [None]
  - DYSTONIA [None]
